FAERS Safety Report 18360465 (Version 1)
Quarter: 2020Q4

REPORT INFORMATION
  Report Type: Spontaneous
  Country: US (occurrence: US)
  Receive Date: 20201008
  Receipt Date: 20201008
  Transmission Date: 20210114
  Serious: Yes (Hospitalization)
  Sender: FDA-Public Use
  Company Number: None

PATIENT
  Sex: Female

DRUGS (25)
  1. TAMSULOSIN [Concomitant]
     Active Substance: TAMSULOSIN
  2. VITAMIN D [Concomitant]
     Active Substance: VITAMIN D NOS
  3. METRONIDAZOL [Concomitant]
     Active Substance: METRONIDAZOLE
  4. FLUTICASONE. [Suspect]
     Active Substance: FLUTICASONE
  5. FLUCONAZOLE. [Concomitant]
     Active Substance: FLUCONAZOLE
  6. MOMETASONE [Concomitant]
     Active Substance: MOMETASONE
  7. SPIRONOLACT [Concomitant]
     Active Substance: SPIRONOLACTONE
  8. CIPROFLOXACIN. [Concomitant]
     Active Substance: CIPROFLOXACIN
  9. DOXYCYCL HYC [Concomitant]
  10. RANITIDINE. [Concomitant]
     Active Substance: RANITIDINE
  11. HUMIRA [Suspect]
     Active Substance: ADALIMUMAB
     Indication: RHEUMATOID ARTHRITIS
     Route: 058
     Dates: start: 202001
  12. AMITRIPTYLIN [Suspect]
     Active Substance: AMITRIPTYLINE
  13. FLORANEX [Suspect]
     Active Substance: LACTOBACILLUS ACIDOPHILUS\LACTOBACILLUS DELBRUECKII SUBSP. BULGARICUS
  14. SMZ/TMP [Concomitant]
     Active Substance: SULFAMETHOXAZOLE\TRIMETHOPRIM
  15. CEPHALEXIN. [Suspect]
     Active Substance: CEPHALEXIN
  16. SUMATRIPTAN. [Concomitant]
     Active Substance: SUMATRIPTAN
  17. CLONAZEPAM. [Suspect]
     Active Substance: CLONAZEPAM
  18. ONDANSETRON [Suspect]
     Active Substance: ONDANSETRON
  19. OXYCODONE [Suspect]
     Active Substance: OXYCODONE
  20. FAMOTIDINE. [Concomitant]
     Active Substance: FAMOTIDINE
  21. MINOCYCLINE [Concomitant]
     Active Substance: MINOCYCLINE HYDROCHLORIDE
  22. ATENOLOL. [Suspect]
     Active Substance: ATENOLOL
  23. AMOX/K CLAV [Concomitant]
     Active Substance: AMOXICILLIN\CLAVULANATE POTASSIUM
  24. OXYCODONE AND ACETAMINOPHEN [Concomitant]
     Active Substance: ACETAMINOPHEN\OXYCODONE HYDROCHLORIDE
  25. TRAMADOL. [Concomitant]
     Active Substance: TRAMADOL

REACTIONS (2)
  - Nephrolithiasis [None]
  - Infection [None]
